FAERS Safety Report 13622302 (Version 1)
Quarter: 2017Q2

REPORT INFORMATION
  Report Type: Spontaneous
  Country: US (occurrence: US)
  Receive Date: 20170607
  Receipt Date: 20170607
  Transmission Date: 20170830
  Serious: No
  Sender: FDA-Public Use
  Company Number: US-ROCHE-1791833

PATIENT
  Sex: Male

DRUGS (2)
  1. XELODA [Suspect]
     Active Substance: CAPECITABINE
     Indication: NASOPHARYNGEAL CANCER METASTATIC
     Route: 065
     Dates: start: 201606
  2. XELODA [Suspect]
     Active Substance: CAPECITABINE
     Indication: METASTASIS

REACTIONS (1)
  - Dysphagia [Unknown]
